FAERS Safety Report 5807016-9 (Version None)
Quarter: 2008Q3

REPORT INFORMATION
  Report Type: 
  Country: None (occurrence: None)
  Receive Date: 20080711
  Receipt Date: 20080702
  Transmission Date: 20090109
  Serious: Yes (Other)
  Sender: FDA-Public Use
  Company Number: JP-BRISTOL-MYERS SQUIBB COMPANY-14254650

PATIENT
  Age: 65 Year
  Sex: Female
  Weight: 49 kg

DRUGS (11)
  1. ABILIFY [Suspect]
     Indication: SCHIZOPHRENIA
     Route: 048
     Dates: start: 20080414
  2. RISPERDAL [Concomitant]
  3. MAGNESIUM OXIDE [Concomitant]
  4. LEVOMEPROMAZINE MALEATE [Concomitant]
     Indication: DELUSION
     Dosage: TAKEN 50 MG/DAY ON 24APR08
  5. LEVOMEPROMAZINE MALEATE [Concomitant]
     Indication: NEGATIVISM
     Dosage: TAKEN 50 MG/DAY ON 24APR08
  6. BIPERIDEN HYDROCHLORIDE TAB [Concomitant]
     Dosage: FORM = TABS
  7. SOLETON [Concomitant]
     Dosage: FORM = TABS
     Dates: start: 20080218, end: 20080511
  8. MYONAL [Concomitant]
     Dates: start: 20080218, end: 20080511
  9. LEVOFLOXACIN [Concomitant]
     Dates: start: 20080428
  10. BUFFERIN [Concomitant]
     Dates: start: 20080428, end: 20080506
  11. PARKIN [Concomitant]

REACTIONS (4)
  - CELLULITIS [None]
  - DELUSION [None]
  - NEGATIVISM [None]
  - PERIODONTITIS [None]
